FAERS Safety Report 19149649 (Version 1)
Quarter: 2021Q2

REPORT INFORMATION
  Report Type: Spontaneous
  Country: US (occurrence: US)
  Receive Date: 20210417
  Receipt Date: 20210417
  Transmission Date: 20210717
  Serious: No
  Sender: FDA-Public Use
  Company Number: US-ASTRAZENECA-2021A189566

PATIENT
  Sex: Male
  Weight: 72.6 kg

DRUGS (1)
  1. PULMICORT RESPULES [Suspect]
     Active Substance: BUDESONIDE
     Indication: MULTIPLE ALLERGIES
     Dosage: TWO TIMES A DAY
     Route: 055

REACTIONS (4)
  - Product use issue [Unknown]
  - Product storage error [Unknown]
  - Nasal congestion [Unknown]
  - Off label use [Unknown]
